FAERS Safety Report 6429400-5 (Version None)
Quarter: 2009Q4

REPORT INFORMATION
  Report Type: 
  Country: None (occurrence: None)
  Receive Date: 20091102
  Receipt Date: 20091021
  Transmission Date: 20100525
  Serious: Yes (Hospitalization)
  Sender: FDA-Public Use
  Company Number: SPV1-2009-02111

PATIENT
  Age: 4 Year
  Sex: Female

DRUGS (3)
  1. VYVANSE [Suspect]
     Indication: ACCIDENTAL DRUG INTAKE BY CHILD
     Dosage: 70 MG, ONE DOSE, ORAL
     Route: 048
     Dates: start: 20090616, end: 20090616
  2. SSRI() TABLET [Suspect]
     Indication: ACCIDENTAL DRUG INTAKE BY CHILD
     Dosage: UP TO TWO 10MG TABS, ORAL
     Route: 048
     Dates: start: 20090616, end: 20090616
  3. LABUTEROL /00139501/(SALBUTAMOL) [Concomitant]

REACTIONS (13)
  - ACCIDENTAL DRUG INTAKE BY CHILD [None]
  - AGITATION [None]
  - ASTHMA [None]
  - ATAXIA [None]
  - BLOOD PRESSURE INCREASED [None]
  - CRYING [None]
  - HALLUCINATION [None]
  - HEADACHE [None]
  - NAUSEA [None]
  - RESTLESSNESS [None]
  - TACHYCARDIA [None]
  - TACHYPNOEA [None]
  - TOXICOLOGIC TEST ABNORMAL [None]
